FAERS Safety Report 12879651 (Version 1)
Quarter: 2016Q4

REPORT INFORMATION
  Report Type: Report from Study
  Country: None (occurrence: DO)
  Receive Date: 20161025
  Receipt Date: 20161025
  Transmission Date: 20170207
  Serious: Yes (Hospitalization)
  Sender: FDA-Public Use
  Company Number: DO-ABBVIE-16K-279-1757865-00

PATIENT
  Age: 63 Year
  Sex: Female
  Weight: 69.46 kg

DRUGS (3)
  1. PREDNISONE. [Concomitant]
     Active Substance: PREDNISONE
     Indication: PAIN
  2. METHOTREXATE. [Concomitant]
     Active Substance: METHOTREXATE
     Indication: PRODUCT USED FOR UNKNOWN INDICATION
     Route: 042
     Dates: start: 20161009
  3. HUMIRA [Suspect]
     Active Substance: ADALIMUMAB
     Indication: RHEUMATOID ARTHRITIS
     Route: 058
     Dates: start: 20120501, end: 20160810

REACTIONS (8)
  - Gallbladder oedema [Recovering/Resolving]
  - Pulmonary oedema [Recovering/Resolving]
  - Influenza [Recovering/Resolving]
  - Kidney enlargement [Recovering/Resolving]
  - Hypotension [Recovering/Resolving]
  - Arthralgia [Recovering/Resolving]
  - Urinary tract infection [Recovering/Resolving]
  - Gallbladder necrosis [Recovering/Resolving]

NARRATIVE: CASE EVENT DATE: 2016
